FAERS Safety Report 23718313 (Version 1)
Quarter: 2024Q2

REPORT INFORMATION
  Report Type: Spontaneous
  Country: US (occurrence: None)
  Receive Date: 20240406
  Receipt Date: 20240406
  Transmission Date: 20240716
  Serious: No
  Sender: FDA-Public Use
  Company Number: None

PATIENT
  Age: 54 Year
  Sex: Female
  Weight: 60.75 kg

DRUGS (19)
  1. DULOXETINE [Suspect]
     Active Substance: DULOXETINE
     Indication: Depression
     Dosage: DAILY ORAL
     Route: 048
     Dates: start: 20220401
  2. LEVOTHYROXINE [Concomitant]
  3. LIOTHYROXINE [Concomitant]
  4. BUSPIRONE HYDROCHLORIDE [Concomitant]
     Active Substance: BUSPIRONE HYDROCHLORIDE
  5. AZELASTINE HYDROCHLORIDE [Concomitant]
     Active Substance: AZELASTINE HYDROCHLORIDE
  6. FLUTICASONE PROPIONATE [Concomitant]
     Active Substance: FLUTICASONE PROPIONATE
  7. NURTEC [Concomitant]
  8. YUVAFEM [Concomitant]
     Active Substance: ESTRADIOL HEMIHYDRATE
  9. DULOXETINE [Concomitant]
     Active Substance: DULOXETINE
  10. MELATONIN [Concomitant]
     Active Substance: MELATONIN
  11. MINERALS\VITAMINS [Concomitant]
     Active Substance: MINERALS\VITAMINS
  12. VITAMIN D3 [Concomitant]
     Active Substance: CHOLECALCIFEROL
  13. BIOTIN [Concomitant]
     Active Substance: BIOTIN
  14. DIETARY SUPPLEMENT [Concomitant]
     Active Substance: DIETARY SUPPLEMENT
  15. MAGNESIUM MALATE [Concomitant]
     Active Substance: MAGNESIUM MALATE
  16. MAGNESIUM GLYCINATE [Concomitant]
     Active Substance: MAGNESIUM GLYCINATE
  17. VITAMIN B COMPLEX [Concomitant]
     Active Substance: CYANOCOBALAMIN\DEXPANTHENOL\NIACINAMIDE\PYRIDOXINE HYDROCHLORIDE\RIBOFLAVIN 5^-PHOSPHATE SODIUM\THIA
  18. CURCUMIN [Concomitant]
     Active Substance: CURCUMIN
  19. COQD-10 [Concomitant]

REACTIONS (4)
  - Withdrawal syndrome [None]
  - Electric shock sensation [None]
  - Depression [None]
  - Anxiety [None]

NARRATIVE: CASE EVENT DATE: 20230120
